FAERS Safety Report 21258238 (Version 5)
Quarter: 2025Q3

REPORT INFORMATION
  Report Type: Report from Study
  Country: PY (occurrence: PY)
  Receive Date: 20220826
  Receipt Date: 20250717
  Transmission Date: 20251020
  Serious: Yes (Hospitalization, Other)
  Sender: ROCHE
  Company Number: PY-ROCHE-3117191

PATIENT
  Age: 2 Year
  Sex: Female
  Weight: 6.5 kg

DRUGS (5)
  1. EVRYSDI [Suspect]
     Active Substance: RISDIPLAM
     Indication: Spinal muscular atrophy
     Route: 065
     Dates: start: 20211119
  2. EVRYSDI [Suspect]
     Active Substance: RISDIPLAM
     Route: 065
  3. EVRYSDI [Suspect]
     Active Substance: RISDIPLAM
     Route: 065
  4. EVRYSDI [Suspect]
     Active Substance: RISDIPLAM
     Route: 065
     Dates: start: 20211119
  5. EVRYSDI [Suspect]
     Active Substance: RISDIPLAM
     Route: 065
     Dates: start: 20211119

REACTIONS (7)
  - Tracheostomy [Unknown]
  - Weight decreased [Unknown]
  - Influenza [Unknown]
  - Intentional product misuse [Unknown]
  - Cardio-respiratory arrest [Recovered/Resolved]
  - Nephrolithiasis [Recovering/Resolving]
  - Blood calcium increased [Unknown]

NARRATIVE: CASE EVENT DATE: 20220723
